FAERS Safety Report 20684587 (Version 1)
Quarter: 2022Q2

REPORT INFORMATION
  Report Type: Spontaneous
  Country: US (occurrence: None)
  Receive Date: 20220406
  Receipt Date: 20220406
  Transmission Date: 20220721
  Serious: Yes (Disabling, Other)
  Sender: FDA-Public Use
  Company Number: None

PATIENT

DRUGS (1)
  1. NABUMETONE [Suspect]
     Active Substance: NABUMETONE

REACTIONS (3)
  - Nerve injury [None]
  - Skin discolouration [None]
  - Insomnia [None]

NARRATIVE: CASE EVENT DATE: 20220406
